FAERS Safety Report 4624389-3 (Version None)
Quarter: 2005Q1

REPORT INFORMATION
  Report Type: 
  Country: None (occurrence: None)
  Receive Date: 20050330
  Receipt Date: 20050330
  Transmission Date: 20050727
  Serious: Yes (Life-Threatening, Hospitalization)
  Sender: FDA-Public Use
  Company Number: None

PATIENT
  Age: 72 Year
  Sex: Female
  Weight: 53 kg

DRUGS (2)
  1. IRINOTECAN PFIZER [Suspect]
     Indication: SMALL INTESTINE CARCINOMA STAGE III
     Dosage: 180 MG/M2 EVERY 2 WEEKS INTRAVENOUS
     Route: 042
     Dates: start: 20041206, end: 20041220
  2. LEUCOVORIN CALCIUM [Suspect]
     Indication: SMALL INTESTINE CARCINOMA STAGE III
     Dosage: 400 MG/M2 EVERY 2 WEEKS INTRAVENOUS
     Route: 042
     Dates: start: 20041206, end: 20041220

REACTIONS (7)
  - BLOOD PRESSURE SYSTOLIC INCREASED [None]
  - DYSPNOEA [None]
  - FEELING ABNORMAL [None]
  - HEART RATE INCREASED [None]
  - HYPERHIDROSIS [None]
  - NAUSEA [None]
  - OXYGEN SATURATION DECREASED [None]
